FAERS Safety Report 17848992 (Version 7)
Quarter: 2020Q4

REPORT INFORMATION
  Report Type: Report from Study
  Country: IE (occurrence: IE)
  Receive Date: 20200602
  Receipt Date: 20201012
  Transmission Date: 20210113
  Serious: Yes (Hospitalization, Disabling, Other)
  Sender: FDA-Public Use
  Company Number: IE-SA-2020SA139467

PATIENT

DRUGS (26)
  1. CLONFOLIC [Concomitant]
     Dosage: 400 MG
     Route: 050
  2. TOVIAZ [Concomitant]
     Active Substance: FESOTERODINE FUMARATE
     Dosage: 8 MG
     Route: 050
  3. TIZANIDINE. [Concomitant]
     Active Substance: TIZANIDINE
     Dosage: 4 MG
     Route: 050
  4. CLONFOLIC [Concomitant]
     Dosage: 400 MG
  5. BETMIGA [Concomitant]
     Active Substance: MIRABEGRON
  6. MAVENCLAD [Suspect]
     Active Substance: CLADRIBINE
     Indication: MULTIPLE SCLEROSIS
     Dosage: WEEK ONE THERAPY: 2 TABLETS ON DAY 1 AND ONE TABLET ON DAYS 2 TO 5.
     Route: 048
     Dates: start: 20190930
  7. LIORESAL [Concomitant]
     Active Substance: BACLOFEN
     Dosage: 1.5 MG
  8. DESUNIN [Concomitant]
     Active Substance: CHOLECALCIFEROL
     Dosage: 800 MG
  9. MIRABEGRON [Concomitant]
     Active Substance: MIRABEGRON
     Dosage: 500 MG
     Route: 050
  10. MIRAPEXIN [Concomitant]
     Active Substance: PRAMIPEXOLE
     Dosage: 180 MG
  11. DULOXETINE KRKA [Concomitant]
  12. DESUNIN [Concomitant]
     Active Substance: CHOLECALCIFEROL
     Dosage: 800 MG
     Route: 050
  13. COTRIMOXAZOLE [Concomitant]
     Active Substance: SULFAMETHOXAZOLE\TRIMETHOPRIM
     Dosage: 80 MG
     Route: 050
  14. MICROLAX [SODIUM CITRATE;SODIUM LAURYL SULFOACETATE] [Concomitant]
     Dosage: 1 MG
     Route: 050
  15. COTRIMOXAZOLE [Concomitant]
     Active Substance: SULFAMETHOXAZOLE\TRIMETHOPRIM
  16. ALTON [ESOMEPRAZOLE MAGNESIUM] [Concomitant]
     Dosage: FASTAB
  17. ALEMTUZUMAB [Suspect]
     Active Substance: ALEMTUZUMAB
     Indication: MULTIPLE SCLEROSIS
     Dosage: UNK
     Route: 065
  18. MAVENCLAD [Suspect]
     Active Substance: CLADRIBINE
     Dosage: WEEK FIVE THERAPY: TWO TABLETS ON DAY 1 AND ONE TABLET ON DAYS 2 TO 5.
     Route: 048
     Dates: start: 20191028
  19. ALTON [ESOMEPRAZOLE MAGNESIUM] [Concomitant]
     Dosage: 30 MG
     Route: 065
  20. TIZANIDINE. [Concomitant]
     Active Substance: TIZANIDINE
  21. DULCOLAX (BISACODYL) [Concomitant]
     Active Substance: BISACODYL
     Dosage: 5 MG
     Route: 050
  22. CLADRIBINE. [Concomitant]
     Active Substance: CLADRIBINE
     Indication: RELAPSING-REMITTING MULTIPLE SCLEROSIS
     Dosage: 10 MG
     Route: 050
  23. LIORESAL [Concomitant]
     Active Substance: BACLOFEN
     Dosage: 1.5 MG
     Route: 050
  24. MIRAPEXIN [Concomitant]
     Active Substance: PRAMIPEXOLE
     Dosage: 180 MG
     Route: 050
  25. DULOXETINE. [Concomitant]
     Active Substance: DULOXETINE
     Dosage: 60 MG
     Route: 050
  26. TOVIAZ [Concomitant]
     Active Substance: FESOTERODINE FUMARATE
     Dosage: 8 MG

REACTIONS (22)
  - Condition aggravated [Not Recovered/Not Resolved]
  - Walking disability [Not Recovered/Not Resolved]
  - Hypoaesthesia [Not Recovered/Not Resolved]
  - Gait disturbance [Not Recovered/Not Resolved]
  - Mobility decreased [Not Recovered/Not Resolved]
  - Pain [Not Recovered/Not Resolved]
  - Gait disturbance [Not Recovered/Not Resolved]
  - Muscular weakness [Not Recovered/Not Resolved]
  - Epidural analgesia [Unknown]
  - Muscle spasms [Not Recovered/Not Resolved]
  - Loss of personal independence in daily activities [Recovered/Resolved]
  - Sleep disorder [Not Recovered/Not Resolved]
  - Fall [Not Recovered/Not Resolved]
  - Pain in extremity [Not Recovered/Not Resolved]
  - Dizziness [Recovered/Resolved]
  - Contraindicated product administered [Unknown]
  - Dysuria [Not Recovered/Not Resolved]
  - Muscle tightness [Not Recovered/Not Resolved]
  - Urinary retention [Unknown]
  - Pain [Not Recovered/Not Resolved]
  - Back pain [Not Recovered/Not Resolved]
  - Urinary tract infection [Not Recovered/Not Resolved]

NARRATIVE: CASE EVENT DATE: 201910
